FAERS Safety Report 7948733-4 (Version None)
Quarter: 2011Q4

REPORT INFORMATION
  Report Type: 
  Country: None (occurrence: None)
  Receive Date: 20111123
  Receipt Date: 20111114
  Transmission Date: 20120403
  Serious: Yes (Hospitalization)
  Sender: FDA-Public Use
  Company Number: AUR-APL-2011-05854

PATIENT
  Age: 49 Year
  Sex: Female

DRUGS (8)
  1. MIRTAZAPINE [Suspect]
     Indication: PRODUCT USED FOR UNKNOWN INDICATION
     Dosage: (15 MG,1 D),ORAL (30 MG,1 D),ORAL ; (45 MG,1 D),ORAL ; (15 MG,1 D),ORAL
     Route: 048
     Dates: start: 20101111, end: 20101118
  2. MIRTAZAPINE [Suspect]
     Indication: PRODUCT USED FOR UNKNOWN INDICATION
     Dosage: (15 MG,1 D),ORAL (30 MG,1 D),ORAL ; (45 MG,1 D),ORAL ; (15 MG,1 D),ORAL
     Route: 048
     Dates: start: 20101119, end: 20101206
  3. MIRTAZAPINE [Suspect]
     Indication: PRODUCT USED FOR UNKNOWN INDICATION
     Dosage: (15 MG,1 D),ORAL (30 MG,1 D),ORAL ; (45 MG,1 D),ORAL ; (15 MG,1 D),ORAL
     Route: 048
     Dates: end: 20101110
  4. MIRTAZAPINE [Suspect]
     Indication: PRODUCT USED FOR UNKNOWN INDICATION
     Dosage: (15 MG,1 D),ORAL (30 MG,1 D),ORAL ; (45 MG,1 D),ORAL ; (15 MG,1 D),ORAL
     Route: 048
     Dates: start: 20101207, end: 20101208
  5. MIRTAZAPINE [Concomitant]
  6. SEROQUEL [Concomitant]
  7. RAMIPRIL [Suspect]
     Indication: PRODUCT USED FOR UNKNOWN INDICATION
     Dosage: 2.5 MG (2.5 MG,1 IN 1 D),ORAL
     Route: 048
     Dates: start: 20101206, end: 20101209
  8. PANTOPRAZOLE SODIUM [Concomitant]

REACTIONS (8)
  - BLISTER [None]
  - PARAESTHESIA [None]
  - OEDEMA [None]
  - RESTLESSNESS [None]
  - TACHYCARDIA [None]
  - OEDEMA PERIPHERAL [None]
  - PAIN IN EXTREMITY [None]
  - SKIN TIGHTNESS [None]
